FAERS Safety Report 14704402 (Version 2)
Quarter: 2018Q2

REPORT INFORMATION
  Report Type: Spontaneous
  Country: US (occurrence: US)
  Receive Date: 20180402
  Receipt Date: 20180507
  Transmission Date: 20180711
  Serious: No
  Sender: FDA-Public Use
  Company Number: US-GLAXOSMITHKLINE-US2018053882

PATIENT
  Sex: Male

DRUGS (1)
  1. NUCALA [Suspect]
     Active Substance: MEPOLIZUMAB
     Indication: PRODUCT USED FOR UNKNOWN INDICATION
     Dosage: UNK
     Dates: start: 201707

REACTIONS (5)
  - Nasal congestion [Unknown]
  - Nocturnal dyspnoea [Unknown]
  - Type IV hypersensitivity reaction [Unknown]
  - Middle insomnia [Unknown]
  - Swelling face [Unknown]

NARRATIVE: CASE EVENT DATE: 20180326
